FAERS Safety Report 8361865-4 (Version None)
Quarter: 2012Q2

REPORT INFORMATION
  Report Type: 
  Country: None (occurrence: None)
  Receive Date: 20120515
  Receipt Date: 20120426
  Transmission Date: 20120825
  Serious: Yes (Death, Other)
  Sender: FDA-Public Use
  Company Number: FR-BAXTER-2012BAX004021

PATIENT
  Age: 55 Year
  Sex: Male
  Weight: 90 kg

DRUGS (15)
  1. HEPARIN [Concomitant]
  2. FLUCONAZOLE [Concomitant]
  3. MORPHINE [Suspect]
     Indication: PAIN
  4. IMIPENEM AND CILASTATIN SODIUM [Concomitant]
  5. CYTOMEL [Concomitant]
  6. CHLORURE DE SODIUM 0.9% POUR CENT BAXTER, SOLUTION POUR PERFUSION EN P [Suspect]
     Indication: INTRAVENOUS CATHETER MANAGEMENT
     Route: 042
  7. NOREPINEPHRINE BITARTRATE [Suspect]
  8. CELLCEPT [Concomitant]
  9. ZOVIRAX [Concomitant]
  10. POTASSIUM CHLORIDE [Suspect]
     Indication: INTRAVENOUS CATHETER MANAGEMENT
     Route: 042
     Dates: start: 20120405, end: 20120405
  11. IMODIUM [Concomitant]
  12. POLYIONIQUE FORMULE 1A G5 BAXTER, SOLUTION POUR PERFUSION [Suspect]
     Route: 042
  13. NEXIUM [Concomitant]
  14. PREDNISONE TAB [Concomitant]
  15. LEVOTHYROXINE SODIUM [Concomitant]

REACTIONS (10)
  - ABDOMINAL PAIN [None]
  - HYPOVOLAEMIA [None]
  - AIR EMBOLISM [None]
  - MULTI-ORGAN FAILURE [None]
  - CHEST PAIN [None]
  - COMA [None]
  - SEPTIC SHOCK [None]
  - RENAL FAILURE [None]
  - CONFUSIONAL STATE [None]
  - MYDRIASIS [None]
